FAERS Safety Report 5612004-1 (Version None)
Quarter: 2008Q1

REPORT INFORMATION
  Report Type: 
  Country: None (occurrence: None)
  Receive Date: 20080130
  Receipt Date: 20080130
  Transmission Date: 20080703
  Serious: No
  Sender: FDA-Public Use
  Company Number: None

PATIENT
  Age: 62 Year
  Sex: Female
  Weight: 81.8 kg

DRUGS (1)
  1. HEPARIN [Suspect]
     Indication: RENAL FAILURE CHRONIC
     Dosage: L 1000 H 500 Q DIALYSIS RUN IV
     Route: 042

REACTIONS (2)
  - DIZZINESS [None]
  - HYPERHIDROSIS [None]
